FAERS Safety Report 7601836-6 (Version None)
Quarter: 2011Q3

REPORT INFORMATION
  Report Type: 
  Country: None (occurrence: None)
  Receive Date: 20110711
  Receipt Date: 20110708
  Transmission Date: 20111222
  Serious: Yes (Life-Threatening)
  Sender: FDA-Public Use
  Company Number: FR-PFIZER INC-2011149691

PATIENT
  Age: 69 Year
  Sex: Female
  Weight: 59 kg

DRUGS (6)
  1. ONDANSERTRON HYDROCHLORIDE [Concomitant]
     Dosage: 2
     Route: 042
     Dates: start: 20110216, end: 20110511
  2. CLASTOBAN [Concomitant]
     Indication: METASTASIS
     Dosage: UNK
     Route: 048
     Dates: start: 20090216, end: 20110601
  3. ZOFENIL [Concomitant]
     Indication: HYPERTENSION
     Dosage: UNK
     Route: 048
     Dates: end: 20110528
  4. SOLU-MEDROL [Suspect]
     Indication: BREAST CANCER
     Dosage: 40 MG, 1X/DAY, EVERY 21 DAYS
     Route: 042
     Dates: start: 20110216, end: 20110511
  5. TAXOTERE [Suspect]
     Indication: BREAST CANCER
     Dosage: 120 MG, CYCLIC, EVERY 21 DAYS
     Route: 042
     Dates: start: 20110216, end: 20110511
  6. CRESTOR [Concomitant]
     Indication: DYSLIPIDAEMIA
     Dosage: UNK
     Route: 048
     Dates: end: 20110528

REACTIONS (4)
  - VOMITING [None]
  - NAUSEA [None]
  - ABDOMINAL PAIN [None]
  - PANCREATITIS NECROTISING [None]
